FAERS Safety Report 16422237 (Version 2)
Quarter: 2019Q2

REPORT INFORMATION
  Report Type: Report from Study
  Country: CO (occurrence: CO)
  Receive Date: 20190612
  Receipt Date: 20190626
  Transmission Date: 20190711
  Serious: Yes (Hospitalization)
  Sender: FDA-Public Use
  Company Number: CO-ASTELLAS-2019US024528

PATIENT
  Age: 71 Year
  Sex: Male

DRUGS (7)
  1. RANITIDINE. [Concomitant]
     Active Substance: RANITIDINE
     Indication: GASTRITIS
     Route: 065
  2. INSULIN DEGLUDEC [Concomitant]
     Active Substance: INSULIN DEGLUDEC
     Indication: DIABETES MELLITUS
     Dosage: UNK UNK (25 UNIT), ONCE DAILY
     Route: 065
  3. TACROLIMUS. [Suspect]
     Active Substance: TACROLIMUS
     Indication: RENAL TRANSPLANT
     Dosage: 4 MG, ONCE DAILY (1CAP X1MG AND 1 CAP X 3MG)
     Route: 048
     Dates: start: 20180105
  4. INSULIN ASPART [Concomitant]
     Active Substance: INSULIN ASPART
     Indication: DIABETES MELLITUS
     Dosage: UNK UNK (36 UNIT), ONCE DAILY
     Route: 065
  5. CLONIDINE. [Concomitant]
     Active Substance: CLONIDINE
     Indication: BLOOD PRESSURE ABNORMAL
     Route: 065
  6. MYCOPHENOLATE [Concomitant]
     Active Substance: MYCOPHENOLIC ACID
     Indication: RENAL TRANSPLANT
     Route: 048
     Dates: start: 20180105
  7. NIFEDIPINE. [Concomitant]
     Active Substance: NIFEDIPINE
     Indication: BLOOD PRESSURE ABNORMAL
     Route: 065

REACTIONS (3)
  - Abscess neck [Recovering/Resolving]
  - Neck pain [Recovering/Resolving]
  - Arthralgia [Recovered/Resolved]

NARRATIVE: CASE EVENT DATE: 201904
